FAERS Safety Report 19739010 (Version 1)
Quarter: 2021Q3

REPORT INFORMATION
  Report Type: Report from Study
  Country: US (occurrence: US)
  Receive Date: 20210824
  Receipt Date: 20210824
  Transmission Date: 20211014
  Serious: Yes (Other)
  Sender: FDA-Public Use
  Company Number: US-JAZZ-2021-US-008384

PATIENT
  Sex: Male

DRUGS (2)
  1. XYWAV [Suspect]
     Active Substance: CALCIUM OXYBATE\MAGNESIUM OXYBATE\POTASSIUM OXYBATE\SODIUM OXYBATE
     Indication: CATAPLEXY
     Dosage: 2.75 GRAM, BID
     Route: 048
     Dates: start: 2021
  2. XYWAV [Suspect]
     Active Substance: CALCIUM OXYBATE\MAGNESIUM OXYBATE\POTASSIUM OXYBATE\SODIUM OXYBATE
     Indication: NARCOLEPSY
     Dosage: 4.5 GRAM, BID
     Route: 048
     Dates: start: 202102, end: 2021

REACTIONS (7)
  - Fatigue [Not Recovered/Not Resolved]
  - Autoimmune disorder [Recovering/Resolving]
  - Vitamin D decreased [Not Recovered/Not Resolved]
  - Somnambulism [Recovered/Resolved]
  - Blood testosterone decreased [Not Recovered/Not Resolved]
  - Sleep paralysis [Recovered/Resolved]
  - Thyroid hormones decreased [Not Recovered/Not Resolved]

NARRATIVE: CASE EVENT DATE: 2021
